FAERS Safety Report 11399126 (Version 3)
Quarter: 2015Q4

REPORT INFORMATION
  Report Type: Report from Study
  Country: PL (occurrence: PL)
  Receive Date: 20150820
  Receipt Date: 20151112
  Transmission Date: 20160304
  Serious: Yes (Hospitalization)
  Sender: FDA-Public Use
  Company Number: PL-BIOGENIDEC-2015BI111578

PATIENT
  Age: 50 Year
  Sex: Female
  Weight: 62 kg

DRUGS (6)
  1. VITAMIN C [Concomitant]
     Active Substance: ASCORBIC ACID
     Indication: CATARRH
     Dates: start: 20150523, end: 20150530
  2. FLUTIXON [Concomitant]
     Route: 055
     Dates: start: 20150518, end: 20150525
  3. BIIB017 [Suspect]
     Active Substance: PEGINTERFERON BETA-1A
     Indication: MULTIPLE SCLEROSIS
     Route: 058
     Dates: start: 20120810
  4. OROFAR MAX [Concomitant]
     Indication: OROPHARYNGEAL PAIN
     Dates: start: 20150523, end: 20150526
  5. RUTINOSCORBIN [Concomitant]
     Indication: CATARRH
     Dates: start: 20150523, end: 20150530
  6. IBUPROFEN. [Concomitant]
     Active Substance: IBUPROFEN
     Indication: PYREXIA
     Dates: start: 20150525, end: 20150527

REACTIONS (1)
  - Cough [Recovered/Resolved]

NARRATIVE: CASE EVENT DATE: 20150527
